FAERS Safety Report 7312243-8 (Version None)
Quarter: 2011Q1

REPORT INFORMATION
  Report Type: 
  Country: None (occurrence: None)
  Receive Date: 20110224
  Receipt Date: 20110217
  Transmission Date: 20110831
  Serious: Yes (Other)
  Sender: FDA-Public Use
  Company Number: A0914184A

PATIENT
  Age: 18 Month
  Sex: Male

DRUGS (2)
  1. NO CONCURRENT MEDICATION [Concomitant]
  2. VERAMYST [Suspect]
     Dosage: 1SPR UNKNOWN
     Route: 045

REACTIONS (2)
  - AGGRESSION [None]
  - OFF LABEL USE [None]
